FAERS Safety Report 8762696 (Version 1)
Quarter: 2012Q4

REPORT INFORMATION
  Report Type: 
  Country: CN (occurrence: CN)
  Receive Date: 20120830
  Receipt Date: 20120830
  Transmission Date: 20130627
  Serious: Yes (Other)
  Sender: FDA-Public Use
  Company Number: CN-ROCHE-1104035

PATIENT
  Age: 48 Year
  Sex: Female
  Weight: 58 kg

DRUGS (2)
  1. CELLCEPT [Suspect]
     Indication: SYSTEMIC LUPUS ERYTHEMATOSUS
     Route: 048
     Dates: start: 20110821, end: 20110825
  2. CELLCEPT [Suspect]
     Route: 048
     Dates: start: 20110825, end: 20110831

REACTIONS (1)
  - Drug-induced liver injury [Recovering/Resolving]
